FAERS Safety Report 18575562 (Version 1)
Quarter: 2020Q4

REPORT INFORMATION
  Report Type: Spontaneous
  Country: CN (occurrence: CN)
  Receive Date: 20201203
  Receipt Date: 20201203
  Transmission Date: 20210114
  Serious: Yes (Hospitalization, Other)
  Sender: FDA-Public Use
  Company Number: CN-BAXTER-2020BAX024584

PATIENT
  Age: 42 Year
  Sex: Female
  Weight: 54.5 kg

DRUGS (4)
  1. SODIUM CHLORIDE. [Suspect]
     Active Substance: SODIUM CHLORIDE
     Indication: MEDICATION DILUTION
     Dosage: DAY 1-5, SODIUM CHLORIDE + HOLOXAN (2 G)
     Route: 041
     Dates: start: 20201109, end: 20201113
  2. DOXORUBICIN HYDROCHLORIDE LIPOSOME [Suspect]
     Active Substance: DOXORUBICIN HYDROCHLORIDE
     Indication: SYNOVIAL SARCOMA
     Dosage: DAY 1-3, DOXORUBICIN HYDROCHLORIDE LIPOSOME + 5% GLUCOSE (250 ML)
     Route: 041
     Dates: start: 20201109, end: 20201111
  3. GLUCOSE [Suspect]
     Active Substance: DEXTROSE
     Indication: MEDICATION DILUTION
     Dosage: DAY 1-3, GLUCOSE + DOXORUBICIN HYDROCHLORIDE LIPOSOME (20 MG)
     Route: 041
     Dates: start: 20201109, end: 20201111
  4. HOLOXAN [Suspect]
     Active Substance: IFOSFAMIDE
     Indication: SYNOVIAL SARCOMA
     Dosage: DAY 1-5, HOLOXAN + 0.9% SODIUM CHLORIDE (1000 ML)
     Route: 041
     Dates: start: 20201109, end: 20201113

REACTIONS (1)
  - White blood cell count increased [Recovering/Resolving]

NARRATIVE: CASE EVENT DATE: 20201111
